FAERS Safety Report 8444542-0 (Version None)
Quarter: 2012Q2

REPORT INFORMATION
  Report Type: 
  Country: None (occurrence: None)
  Receive Date: 20120618
  Receipt Date: 20120607
  Transmission Date: 20120825
  Serious: Yes (Hospitalization, Other)
  Sender: FDA-Public Use
  Company Number: US-ASTRAZENECA-2011SE39246

PATIENT
  Age: 73 Year
  Sex: Female
  Weight: 63.5 kg

DRUGS (7)
  1. PREVACID [Concomitant]
  2. COUMADIN [Concomitant]
  3. OSCAL OTC [Concomitant]
  4. SYNTHROID [Concomitant]
  5. SEROQUEL [Suspect]
     Indication: BIPOLAR DISORDER
     Route: 048
     Dates: start: 20090101
  6. LITHIUM [Concomitant]
  7. SEROQUEL [Suspect]
     Indication: DEPRESSION
     Route: 048
     Dates: start: 20090101

REACTIONS (7)
  - URINARY TRACT INFECTION [None]
  - OSTEOPOROSIS [None]
  - DRUG DOSE OMISSION [None]
  - SEIZURE LIKE PHENOMENA [None]
  - FATIGUE [None]
  - FOOT DEFORMITY [None]
  - INSOMNIA [None]
